FAERS Safety Report 16662125 (Version 1)
Quarter: 2019Q3

REPORT INFORMATION
  Report Type: Spontaneous
  Country: US (occurrence: US)
  Receive Date: 20190802
  Receipt Date: 20190802
  Transmission Date: 20191004
  Serious: Yes (Disabling)
  Sender: FDA-Public Use
  Company Number: None

PATIENT
  Age: 35 Year
  Sex: Male
  Weight: 65.25 kg

DRUGS (3)
  1. CLOBETASOL PROPIONATE. [Suspect]
     Active Substance: CLOBETASOL PROPIONATE
     Indication: ECZEMA
     Route: 061
     Dates: start: 20111008, end: 20181008
  2. CLOBETASOL PROPIONATE. [Suspect]
     Active Substance: CLOBETASOL PROPIONATE
     Indication: DERMATITIS ATOPIC
     Route: 061
     Dates: start: 20111008, end: 20181008
  3. CLOBETASOL PROPIONATE. [Suspect]
     Active Substance: CLOBETASOL PROPIONATE
     Indication: PSORIASIS
     Route: 061
     Dates: start: 20111008, end: 20181008

REACTIONS (7)
  - Chills [None]
  - Skin exfoliation [None]
  - Insomnia [None]
  - Drug ineffective [None]
  - Pruritus [None]
  - Steroid withdrawal syndrome [None]
  - Skin weeping [None]

NARRATIVE: CASE EVENT DATE: 20181008
